FAERS Safety Report 5164371-3 (Version None)
Quarter: 2006Q4

REPORT INFORMATION
  Report Type: 
  Country: None (occurrence: None)
  Receive Date: 20061129
  Receipt Date: 20061129
  Transmission Date: 20070319
  Serious: Yes (Death, Hospitalization)
  Sender: FDA-Public Use
  Company Number: None

PATIENT
  Age: 79 Year
  Sex: Female

DRUGS (10)
  1. CIPROFLOXACIN [Suspect]
     Indication: PNEUMONIA ASPIRATION
  2. MACRODANTIN [Suspect]
     Indication: PNEUMONIA ASPIRATION
  3. LISINOPRIL [Concomitant]
  4. LOPRESSOR [Concomitant]
  5. CARDIZEM [Concomitant]
  6. PREDNISONE TAB [Concomitant]
  7. PHENOBARBITAL TAB [Concomitant]
  8. SYNERCID [Concomitant]
  9. TOBRAMYCIN [Concomitant]
  10. ATIVAN [Concomitant]

REACTIONS (1)
  - TOXIC EPIDERMAL NECROLYSIS [None]
